FAERS Safety Report 17344104 (Version 4)
Quarter: 2023Q2

REPORT INFORMATION
  Report Type: Spontaneous
  Country: US (occurrence: US)
  Receive Date: 20200129
  Receipt Date: 20230526
  Transmission Date: 20230722
  Serious: Yes (Life-Threatening, Hospitalization)
  Sender: FDA-Public Use
  Company Number: US-UCBSA-2020003985

PATIENT
  Age: 52 Year
  Sex: Female
  Weight: 106 kg

DRUGS (1)
  1. CIMZIA [Suspect]
     Active Substance: CERTOLIZUMAB PEGOL
     Indication: Rheumatoid arthritis
     Dosage: 200 MILLIGRAM, EV 2 WEEKS(QOW)
     Route: 058
     Dates: end: 201910

REACTIONS (1)
  - Diverticulitis [Recovering/Resolving]

NARRATIVE: CASE EVENT DATE: 20191001
